FAERS Safety Report 14559227 (Version 1)
Quarter: 2018Q1

REPORT INFORMATION
  Report Type: Spontaneous
  Country: US (occurrence: US)
  Receive Date: 20180221
  Receipt Date: 20180221
  Transmission Date: 20180509
  Serious: Yes (Other)
  Sender: FDA-Public Use
  Company Number: US-BAYER-2018-030923

PATIENT
  Age: 65 Year
  Sex: Male
  Weight: 122.45 kg

DRUGS (17)
  1. HUMIRA [Suspect]
     Active Substance: ADALIMUMAB
     Dosage: 40 MG, Q2WK
     Route: 058
     Dates: start: 2011, end: 201304
  2. HUMIRA [Suspect]
     Active Substance: ADALIMUMAB
     Dosage: 40 MG, Q2WK
     Route: 058
     Dates: start: 20131122
  3. METHOTREXATE. [Concomitant]
     Active Substance: METHOTREXATE
     Dosage: 6 DF, OW
  4. QUININE [QUININE] [Concomitant]
  5. SPIRONOLACTONE. [Concomitant]
     Active Substance: SPIRONOLACTONE
     Dosage: 25 MG, QD
  6. ACCUPRIL [Concomitant]
     Active Substance: QUINAPRIL HYDROCHLORIDE
  7. LASIX [Concomitant]
     Active Substance: FUROSEMIDE
     Dosage: 40 MG, QD
  8. OMEPRAZOLE. [Concomitant]
     Active Substance: OMEPRAZOLE
     Dosage: 40 MG, QD
  9. HUMIRA [Suspect]
     Active Substance: ADALIMUMAB
     Dosage: 40 MG, OW
     Route: 058
     Dates: start: 201406, end: 2016
  10. HUMIRA [Suspect]
     Active Substance: ADALIMUMAB
     Dosage: 40 MG, Q2WK
     Route: 058
     Dates: start: 2016
  11. HUMIRA [Suspect]
     Active Substance: ADALIMUMAB
     Dosage: 40 MG, Q2WK
     Route: 058
     Dates: start: 201304, end: 201306
  12. BAYER ASPIRIN [Suspect]
     Active Substance: ASPIRIN
     Dosage: 1 DF, QD
     Dates: start: 201307
  13. AFRIN ORIGINAL [Suspect]
     Active Substance: OXYMETAZOLINE HYDROCHLORIDE
     Indication: ALLERGIC RESPIRATORY SYMPTOM
  14. AFRIN ORIGINAL [Suspect]
     Active Substance: OXYMETAZOLINE HYDROCHLORIDE
     Indication: NASOPHARYNGITIS
  15. HUMIRA [Suspect]
     Active Substance: ADALIMUMAB
     Dosage: 40 MG, OW
     Route: 058
     Dates: start: 201707
  16. PREDNISONE. [Suspect]
     Active Substance: PREDNISONE
  17. ORENCIA [Suspect]
     Active Substance: ABATACEPT

REACTIONS (52)
  - Pyrexia [Not Recovered/Not Resolved]
  - Gingival pain [Not Recovered/Not Resolved]
  - Scratch [Recovering/Resolving]
  - Arthralgia [Recovering/Resolving]
  - Pain [Not Recovered/Not Resolved]
  - Headache [Not Recovered/Not Resolved]
  - Peripheral swelling [Unknown]
  - Post procedural complication [Recovered/Resolved]
  - Gait disturbance [Recovered/Resolved]
  - Depression [Unknown]
  - Osteonecrosis [Recovered/Resolved]
  - Nasal discomfort [Not Recovered/Not Resolved]
  - Injection site bruising [Recovered/Resolved]
  - Joint dislocation [Recovered/Resolved]
  - Diverticulitis [Not Recovered/Not Resolved]
  - Pain [Unknown]
  - Neck pain [Not Recovered/Not Resolved]
  - Gait inability [Unknown]
  - Feeling abnormal [Recovered/Resolved with Sequelae]
  - Abdominal distension [Not Recovered/Not Resolved]
  - Oesophageal discomfort [Not Recovered/Not Resolved]
  - Knee arthroplasty [Unknown]
  - Skin induration [Not Recovered/Not Resolved]
  - Nausea [Not Recovered/Not Resolved]
  - Oropharyngeal discomfort [Not Recovered/Not Resolved]
  - Osteonecrosis [Recovered/Resolved]
  - Nasal congestion [Recovering/Resolving]
  - Limb mass [Recovering/Resolving]
  - Injection site pain [Recovered/Resolved with Sequelae]
  - Vascular injury [Unknown]
  - Gallbladder disorder [Unknown]
  - Rheumatoid arthritis [Not Recovered/Not Resolved]
  - Nasal pruritus [Recovering/Resolving]
  - Paranasal sinus discomfort [Recovering/Resolving]
  - Pain in extremity [Unknown]
  - Feeling abnormal [Unknown]
  - Fatigue [Not Recovered/Not Resolved]
  - Injection site urticaria [Recovered/Resolved]
  - Skin hypertrophy [Not Recovered/Not Resolved]
  - Musculoskeletal disorder [Unknown]
  - Sinus disorder [Unknown]
  - Neuralgia [Not Recovered/Not Resolved]
  - Influenza like illness [Unknown]
  - Dizziness [Not Recovered/Not Resolved]
  - Skin haemorrhage [Recovered/Resolved]
  - Injection site haemorrhage [Recovered/Resolved]
  - Sensation of foreign body [Not Recovered/Not Resolved]
  - Nasal congestion [Not Recovered/Not Resolved]
  - Sinus disorder [Recovering/Resolving]
  - Facial pain [Recovering/Resolving]
  - Headache [Recovering/Resolving]
  - Sinusitis [Recovered/Resolved]

NARRATIVE: CASE EVENT DATE: 2013
